FAERS Safety Report 7743221-2 (Version None)
Quarter: 2011Q3

REPORT INFORMATION
  Report Type: 
  Country: None (occurrence: None)
  Receive Date: 20110908
  Receipt Date: 20110908
  Transmission Date: 20111222
  Serious: Yes (Death)
  Sender: FDA-Public Use
  Company Number: None

PATIENT
  Sex: Female
  Weight: 101.5 kg

DRUGS (4)
  1. AVASTIN [Suspect]
     Indication: OVARIAN CANCER
     Dosage: 1070MG 2 DOSES IV; 1088MG 3 DOSE IV
     Route: 042
     Dates: start: 20100501
  2. AVASTIN [Suspect]
     Indication: OVARIAN CANCER
     Dosage: 1070MG 2 DOSES IV; 1088MG 3 DOSE IV
     Route: 042
     Dates: start: 20091101
  3. AVASTIN [Suspect]
     Indication: OVARIAN CANCER
     Dosage: 1070MG 2 DOSES IV; 1088MG 3 DOSE IV
     Route: 042
     Dates: start: 20100401
  4. AVASTIN [Suspect]
     Indication: OVARIAN CANCER
     Dosage: 1070MG 2 DOSES IV; 1088MG 3 DOSE IV
     Route: 042
     Dates: start: 20100101

REACTIONS (5)
  - METASTASES TO SKIN [None]
  - THROMBOTIC MICROANGIOPATHY [None]
  - DIALYSIS [None]
  - HYPERTENSION [None]
  - NO THERAPEUTIC RESPONSE [None]
